FAERS Safety Report 6273788-5 (Version None)
Quarter: 2009Q3

REPORT INFORMATION
  Report Type: 
  Country: None (occurrence: None)
  Receive Date: 20090720
  Receipt Date: 20090710
  Transmission Date: 20100115
  Serious: Yes (Life-Threatening, Hospitalization)
  Sender: FDA-Public Use
  Company Number: B0581229A

PATIENT
  Sex: Female

DRUGS (2)
  1. LAMICTAL [Suspect]
     Indication: BIPOLAR DISORDER
     Dosage: 200MG PER DAY
     Route: 048
     Dates: start: 20090601, end: 20090624
  2. LITHIUM CARBONATE [Concomitant]
     Route: 048

REACTIONS (5)
  - ABSCESS LIMB [None]
  - BLISTER [None]
  - MOUTH ULCERATION [None]
  - RASH [None]
  - SKIN ULCER [None]
